FAERS Safety Report 4627810-X (Version None)
Quarter: 2005Q2

REPORT INFORMATION
  Report Type: 
  Country: None (occurrence: None)
  Receive Date: 20050401
  Receipt Date: 20050322
  Transmission Date: 20051028
  Serious: Yes (Other)
  Sender: FDA-Public Use
  Company Number: 2005043548

PATIENT
  Age: 7 Year
  Sex: Male
  Weight: 23 kg

DRUGS (3)
  1. CLINDAMYCIN HYDROCHLORIDE [Suspect]
     Indication: UPPER RESPIRATORY TRACT INFECTION
     Dosage: 150 MG (75 M G, 2 IN 1 D), ORAL
     Route: 048
     Dates: start: 20041108, end: 20041111
  2. CEFADROXIL (CEFADROXIL) [Concomitant]
  3. IBUPROFEN [Concomitant]

REACTIONS (6)
  - BODY TEMPERATURE INCREASED [None]
  - CHEST PAIN [None]
  - DYSPNOEA [None]
  - PALLOR [None]
  - PHARYNGOLARYNGEAL PAIN [None]
  - POLYDIPSIA [None]
